FAERS Safety Report 5499323-7 (Version None)
Quarter: 2007Q4

REPORT INFORMATION
  Report Type: 
  Country: None (occurrence: None)
  Receive Date: 20071024
  Receipt Date: 20071022
  Transmission Date: 20080405
  Serious: Yes (Hospitalization)
  Sender: FDA-Public Use
  Company Number: THQ2007A00683

PATIENT
  Age: 71 Year
  Sex: Male

DRUGS (6)
  1. LEUPROLIDE ACETATE [Suspect]
     Indication: PROSTATE CANCER
     Dosage: 22.5 MG (22.5 MG, 1 IN 3 M)
     Dates: start: 20070302
  2. ZOLEDRONIC ACID [Concomitant]
  3. ALLPURINOL [Concomitant]
  4. OMEPRAZOLE [Concomitant]
  5. ATENOLOL [Concomitant]
  6. BUDESONIDE [Concomitant]

REACTIONS (2)
  - PERIPHERAL ISCHAEMIA [None]
  - TOE AMPUTATION [None]
